FAERS Safety Report 17237639 (Version 1)
Quarter: 2020Q1

REPORT INFORMATION
  Report Type: Spontaneous
  Country: ES (occurrence: ES)
  Receive Date: 20200106
  Receipt Date: 20200106
  Transmission Date: 20200409
  Serious: Yes (Other)
  Sender: FDA-Public Use
  Company Number: ES-MYLANLABS-2020M1001199

PATIENT
  Age: 41 Year
  Sex: Female

DRUGS (2)
  1. BEVACIZUMAB. [Suspect]
     Active Substance: BEVACIZUMAB
     Indication: BREAST CANCER
     Dosage: 10 MG/KG, BIWEEKLY D1 AND 15 IN 28-DAY CYCLES
     Route: 065
     Dates: start: 20150429
  2. PACLITAXEL. [Suspect]
     Active Substance: PACLITAXEL
     Indication: BREAST CANCER
     Dosage: 90 MG, WEEKLY (M2 D1.8 AND 15 IN CYCLES EVERY 28 DAYS)
     Dates: start: 20150429

REACTIONS (4)
  - Epistaxis [Unknown]
  - Neurotoxicity [Unknown]
  - Skin lesion [Unknown]
  - Dyspepsia [Unknown]
